FAERS Safety Report 6347559-5 (Version None)
Quarter: 2009Q3

REPORT INFORMATION
  Report Type: 
  Country: None (occurrence: None)
  Receive Date: 20090910
  Receipt Date: 20090831
  Transmission Date: 20100115
  Serious: Yes (Hospitalization)
  Sender: FDA-Public Use
  Company Number: DE-JNJFOC-20051003260

PATIENT
  Age: 38 Year
  Sex: Male
  Weight: 78 kg

DRUGS (5)
  1. BLINDED; INFLIXIMAB, RECOMBINANT [Suspect]
     Dosage: MOST RECENT INFUSION ON 12-AUG-2009
     Route: 042
     Dates: start: 20000831, end: 20090812
  2. BLINDED; INFLIXIMAB, RECOMBINANT [Suspect]
     Indication: ANKYLOSING SPONDYLITIS
     Dosage: MOST RECENT INFUSION ON 12-AUG-2009
     Route: 042
     Dates: start: 20000831, end: 20090812
  3. PLACEBO [Suspect]
     Route: 042
  4. PLACEBO [Suspect]
     Indication: ANKYLOSING SPONDYLITIS
     Route: 042
  5. AMLODIPINE [Concomitant]
     Indication: HYPERTENSION
     Route: 048

REACTIONS (4)
  - BLOOD CREATINE PHOSPHOKINASE INCREASED [None]
  - EAR DISCOMFORT [None]
  - NAUSEA [None]
  - VERTIGO [None]
